FAERS Safety Report 18439572 (Version 3)
Quarter: 2024Q3

REPORT INFORMATION
  Report Type: Report from Study
  Country: JP (occurrence: JP)
  Receive Date: 20201029
  Receipt Date: 20240918
  Transmission Date: 20241016
  Serious: Yes (Other)
  Sender: ALEXION PHARMACEUTICALS
  Company Number: JP-ALXN-A202015632AA

PATIENT
  Age: 9 Year
  Sex: Female

DRUGS (23)
  1. STRENSIQ [Suspect]
     Active Substance: ASFOTASE ALFA
     Indication: Hypophosphatasia
     Dosage: 2 MILLIGRAM/KILOGRAM, TIW
     Route: 058
     Dates: start: 20151002
  2. VITAMIN B6 [Concomitant]
     Active Substance: PYRIDOXINE HYDROCHLORIDE
     Indication: Hypophosphatasia
     Dosage: 225 MILLIGRAM, BID
     Route: 048
  3. PHENOBARBITAL [Concomitant]
     Active Substance: PHENOBARBITAL
     Indication: Hypophosphatasia
     Dosage: 45 MILLIGRAM, BID
     Route: 048
  4. PHENOBARBITAL [Concomitant]
     Active Substance: PHENOBARBITAL
     Dosage: 50 MILLIGRAM, BID
     Route: 048
  5. RIVOTRIL [Concomitant]
     Active Substance: CLONAZEPAM
     Indication: Hypophosphatasia
     Dosage: 3 MILLIGRAM, BID
     Route: 048
  6. RIVOTRIL [Concomitant]
     Active Substance: CLONAZEPAM
     Dosage: 3.5 MILLIGRAM, BID
     Route: 048
  7. LEVETIRACETAM [Concomitant]
     Active Substance: LEVETIRACETAM
     Indication: Hypophosphatasia
     Dosage: 300 MILLIGRAM, BID
     Route: 048
  8. LEVETIRACETAM [Concomitant]
     Active Substance: LEVETIRACETAM
     Dosage: 400 MILLIGRAM, BID
     Route: 048
  9. FYCOMPA [Concomitant]
     Active Substance: PERAMPANEL
     Indication: Hypophosphatasia
     Dosage: 2 MILLIGRAM, QD
     Route: 048
     Dates: start: 20201015
  10. FYCOMPA [Concomitant]
     Active Substance: PERAMPANEL
     Dosage: 2.5 MILLIGRAM, QD
     Route: 048
  11. FYCOMPA [Concomitant]
     Active Substance: PERAMPANEL
     Dosage: 3 MILLIGRAM, QD
     Route: 048
  12. NITRAZEPAM [Concomitant]
     Active Substance: NITRAZEPAM
     Indication: Hypophosphatasia
     Dosage: 4 MILLIGRAM, QD
     Route: 048
  13. ROZEREM [Concomitant]
     Active Substance: RAMELTEON
     Indication: Prophylaxis
     Dosage: 2 MILLIGRAM, QD
     Route: 048
  14. ROZEREM [Concomitant]
     Active Substance: RAMELTEON
     Dosage: 3 MILLIGRAM, QD
     Route: 048
  15. ROZEREM [Concomitant]
     Active Substance: RAMELTEON
     Dosage: 4 MILLIGRAM, QD
     Route: 048
  16. Mucosal [Concomitant]
     Indication: Prophylaxis
     Dosage: 3 MILLIGRAM, TID
     Route: 048
  17. Mucosal [Concomitant]
     Dosage: 4 MILLIGRAM, TID
     Route: 048
  18. Mucosal [Concomitant]
     Dosage: 7.5 MILLIGRAM, BID
     Route: 048
  19. CARBOCYSTEINE [Concomitant]
     Active Substance: CARBOCYSTEINE
     Indication: Prophylaxis
     Dosage: 100 MILLIGRAM, TID
     Route: 048
  20. CARBOCYSTEINE [Concomitant]
     Active Substance: CARBOCYSTEINE
     Dosage: 133.33 MILLIGRAM, TID
     Route: 048
  21. CARBOCYSTEINE [Concomitant]
     Active Substance: CARBOCYSTEINE
     Dosage: 200 MILLIGRAM, BID
     Route: 048
  22. LEVOCARNITINE [Concomitant]
     Active Substance: LEVOCARNITINE
     Indication: Prophylaxis
     Dosage: 1 MILLILITER, TID
     Route: 048
  23. LEVOCARNITINE [Concomitant]
     Active Substance: LEVOCARNITINE
     Dosage: 1 MILLILITER, BID
     Route: 048

REACTIONS (6)
  - Femur fracture [Recovered/Resolved]
  - Rickets [Unknown]
  - Scoliosis [Unknown]
  - Hypoacusis [Unknown]
  - Gastrooesophageal reflux disease [Unknown]
  - Hypozincaemia [Not Recovered/Not Resolved]

NARRATIVE: CASE EVENT DATE: 20200205
